FAERS Safety Report 5614101-3 (Version None)
Quarter: 2008Q1

REPORT INFORMATION
  Report Type: 
  Country: None (occurrence: None)
  Receive Date: 20080130
  Receipt Date: 20080117
  Transmission Date: 20080703
  Serious: Yes (Hospitalization)
  Sender: FDA-Public Use
  Company Number: 100#03#2008-00367

PATIENT
  Age: 36 Year
  Sex: Male

DRUGS (9)
  1. CITALOPRAM HYDROBROMIDE [Suspect]
     Indication: DEPRESSION
  2. FENTANYL [Suspect]
     Indication: GENERAL ANAESTHESIA
     Dosage: 100 UG (INDUCTION); 50 UG (10 MIN AFTER INDUCTION)
  3. KETOROLAC (KETOLORAC) [Concomitant]
  4. NEOSTIGMINE (NEOSTIGMINE) [Concomitant]
  5. ATRACURIUM BESYLATE [Concomitant]
  6. GLYCOPYRRONIUM (GLYCOPYRRONIUM) [Concomitant]
  7. ISOFLURANE (1.3 PERCENT) (ISOFLURANE) [Concomitant]
  8. NITROUS OXIDE W/ OXYGEN [Concomitant]
  9. THIOPENTONE (THIOPENTAL (THIOPENTONE) [Concomitant]

REACTIONS (2)
  - COMA [None]
  - CONVERSION DISORDER [None]
